FAERS Safety Report 5503544-4 (Version None)
Quarter: 2007Q4

REPORT INFORMATION
  Report Type: 
  Country: None (occurrence: None)
  Receive Date: 20071029
  Receipt Date: 20071016
  Transmission Date: 20080405
  Serious: Yes (Death)
  Sender: FDA-Public Use
  Company Number: GXKR2007GB08841

PATIENT
  Age: 47 Year
  Sex: Male

DRUGS (6)
  1. CODEINE PHOSPHATE (NGX)(CODEINE PHOSPHATE) UNKNOWN [Suspect]
  2. HEMINEVRIN(CLOMETHIAZOLE EDISILATE) [Suspect]
     Dosage: ORAL
     Route: 048
  3. MORPHINE [Suspect]
  4. ETHANOL(ETHANOL) [Suspect]
  5. OPIUM DERIVATIVES AND EXPECTORANTS(NO INGREDIENTS/SUBSTANCES) [Suspect]
  6. BENZODIAPINES(NO INGREDIENTS/SUBSTANCES) [Suspect]

REACTIONS (5)
  - BLOOD ALCOHOL INCREASED [None]
  - DRUG ABUSE [None]
  - DRUG INTERACTION POTENTIATION [None]
  - DRUG LEVEL ABOVE THERAPEUTIC [None]
  - DRUG TOXICITY [None]
